FAERS Safety Report 5104109-9 (Version None)
Quarter: 2006Q3

REPORT INFORMATION
  Report Type: 
  Country: None (occurrence: None)
  Receive Date: 20060911
  Receipt Date: 20060831
  Transmission Date: 20061208
  Serious: Yes (Life-Threatening)
  Sender: FDA-Public Use
  Company Number: LTI2006A00201

PATIENT
  Age: 80 Year
  Sex: Male

DRUGS (3)
  1. LEUPROLIDE ACETATE [Suspect]
     Dosage: 11.25 MG
     Dates: start: 20060515
  2. CLASTOBAN (CLODRONATE DISODIUM) (TABLETS) [Suspect]
     Dosage: 1600 MG (800 MG, 2 IN 1 D) ORAL
     Route: 048
     Dates: start: 20060515, end: 20060706
  3. ANANDRON (NILUTAMIDE) (TABLETS) [Concomitant]

REACTIONS (7)
  - ASTHENIA [None]
  - BLOOD POTASSIUM INCREASED [None]
  - CONDITION AGGRAVATED [None]
  - CONFUSIONAL STATE [None]
  - HYPOCALCAEMIA [None]
  - IMPAIRED SELF-CARE [None]
  - PROSTATE CANCER [None]
